FAERS Safety Report 10046109 (Version 4)
Quarter: 2014Q3

REPORT INFORMATION
  Report Type: Report from Study
  Country: US (occurrence: US)
  Receive Date: 20140331
  Receipt Date: 20140711
  Transmission Date: 20150326
  Serious: Yes (Hospitalization)
  Sender: FDA-Public Use
  Company Number: US-BIOGENIDEC-2014BI028074

PATIENT
  Age: 53 Year
  Sex: Female

DRUGS (2)
  1. TYSABRI [Suspect]
     Active Substance: NATALIZUMAB
     Indication: MULTIPLE SCLEROSIS
     Route: 042
     Dates: start: 20120106, end: 20131114
  2. PERCOCET [Concomitant]
     Active Substance: ACETAMINOPHEN\OXYCODONE HYDROCHLORIDE

REACTIONS (14)
  - Vomiting [Not Recovered/Not Resolved]
  - Encephalopathy [Recovered/Resolved]
  - Upper limb fracture [Not Recovered/Not Resolved]
  - Hypersomnia [Unknown]
  - Poor venous access [Not Recovered/Not Resolved]
  - Retching [Recovered/Resolved]
  - Post-traumatic amnestic disorder [Recovered/Resolved]
  - Pain [Not Recovered/Not Resolved]
  - Radial nerve injury [Recovered/Resolved]
  - Peripheral swelling [Not Recovered/Not Resolved]
  - Oedema [Not Recovered/Not Resolved]
  - Humerus fracture [Recovered/Resolved]
  - Fall [Recovered/Resolved]
  - Influenza [Recovered/Resolved]

NARRATIVE: CASE EVENT DATE: 201311
